FAERS Safety Report 10342224 (Version 3)
Quarter: 2014Q3

REPORT INFORMATION
  Report Type: Spontaneous
  Country: FR (occurrence: FR)
  Receive Date: 20140725
  Receipt Date: 20140918
  Transmission Date: 20150326
  Serious: Yes (Other)
  Sender: FDA-Public Use
  Company Number: FR-SA-2014SA098523

PATIENT
  Age: 58 Year
  Sex: Female
  Weight: 88 kg

DRUGS (3)
  1. MYOZYME [Suspect]
     Active Substance: ALGLUCOSIDASE ALFA
     Indication: GLYCOGEN STORAGE DISEASE TYPE II
     Route: 041
     Dates: start: 2008
  2. VIT K ANTAGONISTS [Concomitant]
     Active Substance: UNSPECIFIED INGREDIENT
  3. PREVISCAN [Concomitant]
     Active Substance: FLUINDIONE

REACTIONS (2)
  - Vena cava thrombosis [Recovered/Resolved]
  - Infusion site thrombosis [Unknown]

NARRATIVE: CASE EVENT DATE: 201305
